FAERS Safety Report 14753606 (Version 1)
Quarter: 2018Q2

REPORT INFORMATION
  Report Type: Spontaneous
  Country: US (occurrence: US)
  Receive Date: 20180412
  Receipt Date: 20180412
  Transmission Date: 20180711
  Serious: No
  Sender: FDA-Public Use
  Company Number: US-VIFOR (INTERNATIONAL) INC.-VIT-2018-03283

PATIENT
  Sex: Female
  Weight: 47 kg

DRUGS (1)
  1. MIRCERA [Suspect]
     Active Substance: METHOXY POLYETHYLENE GLYCOL-EPOETIN BETA
     Indication: PRODUCT USED FOR UNKNOWN INDICATION

REACTIONS (4)
  - Dyspnoea [Unknown]
  - Tremor [Unknown]
  - Feeling abnormal [Unknown]
  - Chest pain [Unknown]
